FAERS Safety Report 9454339 (Version 4)
Quarter: 2016Q1

REPORT INFORMATION
  Report Type: Report from Study
  Country: BR (occurrence: BR)
  Receive Date: 20130812
  Receipt Date: 20160303
  Transmission Date: 20160526
  Serious: Yes (Hospitalization, Other)
  Sender: FDA-Public Use
  Company Number: PHHY2013BR084284

PATIENT
  Sex: Male
  Weight: 121 kg

DRUGS (7)
  1. PARACETAMOL [Concomitant]
     Active Substance: ACETAMINOPHEN
     Indication: HEADACHE
     Dosage: 4 DF, DAILY
     Route: 048
     Dates: start: 2004
  2. DEPOSTERON [Concomitant]
     Indication: HORMONE LEVEL ABNORMAL
     Dosage: 1 DF, QMO
     Route: 030
     Dates: start: 2005
  3. PARACETAMOL [Concomitant]
     Active Substance: ACETAMINOPHEN
     Indication: ARTHRALGIA
  4. SANDOSTATIN LAR DEPOT [Suspect]
     Active Substance: OCTREOTIDE ACETATE
     Indication: ACROMEGALY
     Dosage: 30 MG, QMO/EVERY 28 DAYS
     Route: 030
     Dates: start: 2005
  5. ACTRAPID [Concomitant]
     Active Substance: INSULIN HUMAN
     Indication: PRODUCT USED FOR UNKNOWN INDICATION
     Dosage: UNK UKN, UNK
     Route: 065
  6. PARACETAMOL [Concomitant]
     Active Substance: ACETAMINOPHEN
     Indication: BACK PAIN
  7. AAS [Concomitant]
     Active Substance: ASPIRIN
     Indication: PRODUCT USED FOR UNKNOWN INDICATION
     Dosage: UNK UKN, UNK
     Route: 065
     Dates: start: 2005

REACTIONS (23)
  - Diabetes mellitus inadequate control [Unknown]
  - Cold sweat [Unknown]
  - Hypothyroidism [Not Recovered/Not Resolved]
  - Pain in extremity [Unknown]
  - Retching [Unknown]
  - Diarrhoea [Unknown]
  - Blindness [Recovering/Resolving]
  - Neoplasm progression [Unknown]
  - Blood cholesterol increased [Not Recovered/Not Resolved]
  - Malaise [Unknown]
  - Asthenia [Unknown]
  - Neoplasm [Unknown]
  - Pain [Not Recovered/Not Resolved]
  - Arthralgia [Unknown]
  - Diabetes mellitus [Not Recovered/Not Resolved]
  - Blood pressure increased [Not Recovered/Not Resolved]
  - Abdominal pain [Unknown]
  - Abdominal pain upper [Not Recovered/Not Resolved]
  - Epistaxis [Recovered/Resolved]
  - Adrenocortical insufficiency acute [Not Recovered/Not Resolved]
  - Seizure [Unknown]
  - Headache [Unknown]
  - Blood pressure fluctuation [Unknown]

NARRATIVE: CASE EVENT DATE: 2008
